FAERS Safety Report 5176745-5 (Version None)
Quarter: 2006Q4

REPORT INFORMATION
  Report Type: 
  Country: None (occurrence: None)
  Receive Date: 20061218
  Receipt Date: 20061207
  Transmission Date: 20070319
  Serious: Yes (Hospitalization, Other)
  Sender: FDA-Public Use
  Company Number: GB-JNJFOC-20061201912

PATIENT
  Sex: Female
  Weight: 65 kg

DRUGS (6)
  1. REMICADE [Suspect]
     Indication: RHEUMATOID ARTHRITIS
     Route: 042
  2. METHOTREXATE [Concomitant]
     Route: 065
  3. PREDNISOLONE [Concomitant]
     Route: 065
  4. CELEBREX [Concomitant]
     Route: 065
  5. EVISTA [Concomitant]
     Route: 065
  6. FOLIC ACID [Concomitant]
     Route: 065

REACTIONS (4)
  - CONTUSION [None]
  - PATELLA FRACTURE [None]
  - ROAD TRAFFIC ACCIDENT [None]
  - TIBIA FRACTURE [None]
